FAERS Safety Report 23415327 (Version 1)
Quarter: 2024Q1

REPORT INFORMATION
  Report Type: Spontaneous
  Country: CN (occurrence: CN)
  Receive Date: 20240118
  Receipt Date: 20240118
  Transmission Date: 20240409
  Serious: Yes (Life-Threatening, Hospitalization, Other)
  Sender: FDA-Public Use
  Company Number: CN-ALKEM LABORATORIES LIMITED-CN-ALKEM-2024-00182

PATIENT
  Age: 50 Year
  Sex: Female

DRUGS (1)
  1. METFORMIN HYDROCHLORIDE [Suspect]
     Active Substance: METFORMIN HYDROCHLORIDE
     Indication: Diabetes mellitus
     Dosage: 40 GRAM
     Route: 048

REACTIONS (6)
  - Suicide attempt [Unknown]
  - Shock [Unknown]
  - Hypernatraemia [Unknown]
  - Renal failure [Unknown]
  - Lactic acidosis [Unknown]
  - Overdose [Unknown]
